FAERS Safety Report 5338360-X (Version None)
Quarter: 2007Q2

REPORT INFORMATION
  Report Type: 
  Country: None (occurrence: None)
  Receive Date: 20070322
  Receipt Date: 20060109
  Transmission Date: 20071010
  Serious: Yes (Other)
  Sender: FDA-Public Use
  Company Number: 200513509BCC

PATIENT
  Age: 57 Year
  Sex: Male
  Weight: 97.5234 kg

DRUGS (1)
  1. ALEVE [Suspect]
     Indication: TOOTHACHE
     Dosage: 220 MG, ONCE, ORAL
     Route: 048
     Dates: start: 20050831

REACTIONS (9)
  - ANAPHYLACTIC REACTION [None]
  - DYSPNOEA [None]
  - ERYTHEMA [None]
  - FEELING HOT [None]
  - LARYNGEAL DISORDER [None]
  - PULMONARY CONGESTION [None]
  - SPEECH DISORDER [None]
  - THROAT TIGHTNESS [None]
  - WHEEZING [None]
